FAERS Safety Report 9802938 (Version 1)
Quarter: 2014Q1

REPORT INFORMATION
  Report Type: Spontaneous
  Country: US (occurrence: None)
  Receive Date: 20140106
  Receipt Date: 20140106
  Transmission Date: 20141002
  Serious: Yes (Disabling)
  Sender: FDA-Public Use
  Company Number: None

PATIENT
  Age: 56 Year
  Sex: Female
  Weight: 70.31 kg

DRUGS (1)
  1. CHLORTHALIDONE [Suspect]
     Indication: HYPERTENSION
     Dosage: 1/2 (12.5MG) PILL  ONCE DAILY  TAKEN BY MOUTH
     Route: 048
     Dates: start: 20130228, end: 20140103

REACTIONS (2)
  - Blood glucose increased [None]
  - Type 2 diabetes mellitus [None]
